FAERS Safety Report 12466713 (Version 2)
Quarter: 2016Q2

REPORT INFORMATION
  Report Type: Report from Study
  Country: US (occurrence: US)
  Receive Date: 20160615
  Receipt Date: 20160616
  Transmission Date: 20160815
  Serious: Yes (Hospitalization, Other)
  Sender: FDA-Public Use
  Company Number: US-ALEXION PHARMACEUTICALS INC.-A201604127

PATIENT
  Sex: Male

DRUGS (1)
  1. SOLIRIS [Suspect]
     Active Substance: ECULIZUMAB
     Indication: HAEMOLYTIC URAEMIC SYNDROME
     Dosage: UNK
     Route: 042

REACTIONS (13)
  - Peripheral swelling [Unknown]
  - Device related infection [Unknown]
  - Arthritis infective [Unknown]
  - Dysarthria [Unknown]
  - Blood creatinine increased [Unknown]
  - Pain [Unknown]
  - Mental disorder [Unknown]
  - Acidosis [Unknown]
  - Urinary retention [Unknown]
  - Lethargy [Unknown]
  - Urinary tract infection [Unknown]
  - Delirium [Unknown]
  - Scar [Unknown]
